FAERS Safety Report 17687349 (Version 1)
Quarter: 2020Q2

REPORT INFORMATION
  Report Type: Report from Study
  Country: US (occurrence: US)
  Receive Date: 20200421
  Receipt Date: 20200421
  Transmission Date: 20200714
  Serious: No
  Sender: FDA-Public Use
  Company Number: NVSC2020US105048

PATIENT
  Sex: Female

DRUGS (1)
  1. PIQRAY [Suspect]
     Active Substance: ALPELISIB
     Indication: PRODUCT USED FOR UNKNOWN INDICATION
     Route: 048

REACTIONS (6)
  - Fatigue [Unknown]
  - Burning sensation [Unknown]
  - Urinary tract infection [Unknown]
  - Tumour marker increased [Unknown]
  - Nausea [Unknown]
  - Diarrhoea [Unknown]
